FAERS Safety Report 5162980-9 (Version None)
Quarter: 2006Q4

REPORT INFORMATION
  Report Type: 
  Country: None (occurrence: None)
  Receive Date: 20061201
  Receipt Date: 20061108
  Transmission Date: 20070319
  Serious: Yes (Other)
  Sender: FDA-Public Use
  Company Number: JP-ELI_LILLY_AND_COMPANY-JP200611001757

PATIENT
  Age: 78 Year
  Sex: Female

DRUGS (5)
  1. EVISTA [Suspect]
     Route: 048
  2. DIOVAN [Concomitant]
     Route: 048
  3. LIPOVAS [Concomitant]
     Route: 048
  4. ATELEC [Concomitant]
     Route: 048
  5. EPADEL [Concomitant]
     Route: 048

REACTIONS (1)
  - PLATELET COUNT DECREASED [None]
